FAERS Safety Report 24783992 (Version 1)
Quarter: 2024Q4

REPORT INFORMATION
  Report Type: Spontaneous
  Country: CH (occurrence: CH)
  Receive Date: 20241227
  Receipt Date: 20241227
  Transmission Date: 20250114
  Serious: Yes (Hospitalization)
  Sender: EISAI
  Company Number: CH-Eisai-EC-2024-181320

PATIENT
  Age: 81 Year
  Sex: Male

DRUGS (8)
  1. ARICEPT [Suspect]
     Active Substance: DONEPEZIL HYDROCHLORIDE
     Indication: Product used for unknown indication
     Dosage: THREE DOSES CONSUMED
     Route: 048
     Dates: start: 20241122, end: 20241124
  2. RISPERDAL [Suspect]
     Active Substance: RISPERIDONE
     Indication: Product used for unknown indication
     Dosage: 2 DOSES RECEIVED
     Route: 048
     Dates: start: 20241122, end: 20241123
  3. CLARITHROMYCIN [Suspect]
     Active Substance: CLARITHROMYCIN
     Indication: Respiratory syncytial virus infection
     Route: 048
     Dates: start: 20241121, end: 20241125
  4. MEMANTINE HYDROCHLORIDE [Suspect]
     Active Substance: MEMANTINE HYDROCHLORIDE
     Indication: Product used for unknown indication
     Dosage: ONLY ONE DOSE
     Route: 048
     Dates: start: 20241124, end: 20241124
  5. PANTOZOL [Suspect]
     Active Substance: PANTOPRAZOLE SODIUM
     Indication: Product used for unknown indication
     Dosage: 4 DOSES CONSUMED
     Route: 048
     Dates: start: 20241122, end: 20241125
  6. CLOMETHIAZOLE [Suspect]
     Active Substance: CLOMETHIAZOLE
     Indication: Product used for unknown indication
     Dosage: TWO DOSES CONSUMED
     Route: 048
     Dates: start: 20241122, end: 20241123
  7. ASPIRIN [Suspect]
     Active Substance: ASPIRIN
     Indication: Product used for unknown indication
     Dosage: 4 DOSES CONSUMED
     Route: 048
     Dates: start: 20241122, end: 20241125
  8. AMOXICILLIN\CLAVULANATE POTASSIUM [Suspect]
     Active Substance: AMOXICILLIN\CLAVULANATE POTASSIUM
     Indication: Respiratory syncytial virus infection
     Dosage: FREQUENCY UNKNOWN
     Route: 048
     Dates: start: 20241120

REACTIONS (3)
  - Confusional state [Unknown]
  - Medication error [Unknown]
  - Product prescribing error [Unknown]

NARRATIVE: CASE EVENT DATE: 20241124
